FAERS Safety Report 19209125 (Version 2)
Quarter: 2021Q3

REPORT INFORMATION
  Report Type: Spontaneous
  Country: FI (occurrence: FI)
  Receive Date: 20210503
  Receipt Date: 20210707
  Transmission Date: 20211014
  Serious: Yes (Disabling, Other)
  Sender: FDA-Public Use
  Company Number: FI-ELI_LILLY_AND_COMPANY-FI201912010125

PATIENT
  Age: 50 Year
  Sex: Female

DRUGS (7)
  1. VISCOTEARS [Concomitant]
     Active Substance: CARBOMER
     Indication: DRY EYE
     Dosage: UNK, PRN
     Route: 047
  2. GASTERIX [Concomitant]
     Indication: PROPHYLAXIS AGAINST GASTROINTESTINAL ULCER
     Dosage: 30 MG, DAILY
     Route: 048
  3. OCULAC [POVIDONE] [Concomitant]
     Active Substance: POVIDONE
     Indication: DRY EYE
     Dosage: UNK, PRN
     Route: 047
  4. TALTZ [Suspect]
     Active Substance: IXEKIZUMAB
     Indication: PSORIATIC ARTHROPATHY
     Dosage: 80 MG, UNKNOWN
     Route: 058
     Dates: start: 201905, end: 20190801
  5. MOTIFENE [Concomitant]
     Active Substance: DICLOFENAC SODIUM
     Indication: ARTHRALGIA
     Dosage: UNK, PRN
     Route: 048
  6. THYROXIN [Concomitant]
     Active Substance: LEVOTHYROXINE
     Indication: HYPOTHYROIDISM
     Dosage: 150 UG, DAILY
     Route: 048
     Dates: start: 1998
  7. CALCICHEW D3 STRONG SITRUUNA [Concomitant]
     Indication: OSTEOPOROSIS
     Dosage: 2 DOSAGE FORM, DAILY
     Route: 048

REACTIONS (7)
  - Diarrhoea [Not Recovered/Not Resolved]
  - Pyrexia [Not Recovered/Not Resolved]
  - Chronic sinusitis [Recovered/Resolved with Sequelae]
  - Neck pain [Recovered/Resolved with Sequelae]
  - Crohn^s disease [Recovered/Resolved with Sequelae]
  - Hyperthyroidism [Recovered/Resolved with Sequelae]
  - Aphthous ulcer [Recovered/Resolved with Sequelae]

NARRATIVE: CASE EVENT DATE: 201907
